FAERS Safety Report 17830783 (Version 1)
Quarter: 2020Q2

REPORT INFORMATION
  Report Type: Report from Study
  Country: ES (occurrence: ES)
  Receive Date: 20200527
  Receipt Date: 20200527
  Transmission Date: 20200714
  Serious: Yes (Hospitalization)
  Sender: FDA-Public Use
  Company Number: ES-JNJFOC-20200527900

PATIENT
  Age: 87 Year
  Sex: Female

DRUGS (6)
  1. BUPRENORFINA [BUPRENORPHINE] [Interacting]
     Active Substance: BUPRENORPHINE
     Indication: OSTEOARTHRITIS
     Dosage: 10 MICROGRAM, 1/DAY
     Route: 062
     Dates: start: 201704, end: 20170521
  2. TROMALYT [Suspect]
     Active Substance: ASPIRIN
     Indication: ISCHAEMIC CARDIOMYOPATHY
     Dosage: 300 MILLIGRAM, 1/DAY
     Route: 048
     Dates: end: 20170521
  3. METAMIZOLE [Concomitant]
     Active Substance: METAMIZOLE
     Indication: OSTEOARTHRITIS
     Dosage: 1.15 GRAM, 1/DAY
     Route: 048
     Dates: start: 201007, end: 20170521
  4. NAPROXENO                          /00256201/ [Suspect]
     Active Substance: NAPROXEN
     Indication: OSTEOARTHRITIS
     Dosage: 1.1 GRAM, 1/DAY
     Route: 048
     Dates: start: 20170424, end: 20170521
  5. TRAMADOL HYDROCHLORIDE. [Suspect]
     Active Substance: TRAMADOL HYDROCHLORIDE
     Indication: PRODUCT USED FOR UNKNOWN INDICATION
     Dosage: 100 MILLIGRAM, 1/DAY
     Route: 048
     Dates: start: 201608
  6. PARACETAMOL [Concomitant]
     Active Substance: ACETAMINOPHEN
     Indication: OSTEOARTHRITIS
     Dosage: 3 GRAM, 1/DAY
     Route: 048

REACTIONS (2)
  - Drug interaction [Recovered/Resolved]
  - Lower gastrointestinal haemorrhage [Recovered/Resolved]

NARRATIVE: CASE EVENT DATE: 201704
